FAERS Safety Report 9253803 (Version 2)
Quarter: 2013Q2

REPORT INFORMATION
  Report Type: Spontaneous
  Country: US (occurrence: None)
  Receive Date: 20130419
  Receipt Date: 20130621
  Transmission Date: 20140414
  Serious: Yes (Disabling, Other)
  Sender: FDA-Public Use
  Company Number: ACO_35491_2013

PATIENT
  Age: 51 Year
  Sex: Male
  Weight: 108.8 kg

DRUGS (10)
  1. AMPYRA (DALFAMPRIDINE) TABLET, 10MG [Suspect]
     Indication: PRODUCT USED FOR UNKNOWN INDICATION
     Route: 048
  2. FLOMAX (TAMSULOSIN HYDROCHLORIDE) CAPSULE [Concomitant]
  3. GILENYA (FINGOLIMOD HYDROCHLORIDE) CAPSULE [Concomitant]
  4. GABAPENTIN (GABAPENTIN( CAPSULE [Concomitant]
  5. IBUPROFEN (IBUPROFEN) CAPSULE [Concomitant]
  6. ENALAPRIL (ENALAPRIL) TABLET [Concomitant]
  7. SIMVASTATIN (SIMVASTATIN) TABLET [Concomitant]
  8. SB ALLERGY CAPSULE [Concomitant]
  9. POTASSIUM (POTASSIUM) TABLET [Concomitant]
  10. FUROSEMIDE (FUROSEMIDE) TABLET [Concomitant]

REACTIONS (7)
  - Abasia [None]
  - Cellulitis [None]
  - Cystitis [None]
  - Headache [None]
  - Insomnia [None]
  - Drug ineffective [None]
  - Urinary tract infection [None]
